FAERS Safety Report 8437248-5 (Version None)
Quarter: 2012Q2

REPORT INFORMATION
  Report Type: 
  Country: None (occurrence: None)
  Receive Date: 20120614
  Receipt Date: 20120229
  Transmission Date: 20120825
  Serious: No
  Sender: FDA-Public Use
  Company Number: US-AMGEN-USASP2012013603

PATIENT
  Sex: Female

DRUGS (6)
  1. FEMARA [Concomitant]
     Dosage: UNK
  2. ASPIRIN [Concomitant]
     Dosage: UNK
  3. VITAMIN D [Concomitant]
     Dosage: UNK
  4. XGEVA [Suspect]
     Indication: METASTASES TO BONE
     Dosage: UNK UNK, Q4WK
     Dates: start: 20120220
  5. ASCORBIC ACID [Concomitant]
     Dosage: UNK
  6. VITAMIN E [Concomitant]
     Dosage: UNK

REACTIONS (4)
  - MUSCULOSKELETAL STIFFNESS [None]
  - GAIT DISTURBANCE [None]
  - PAIN IN EXTREMITY [None]
  - ABDOMINAL PAIN UPPER [None]
